FAERS Safety Report 7951685-4 (Version None)
Quarter: 2011Q4

REPORT INFORMATION
  Report Type: 
  Country: None (occurrence: None)
  Receive Date: 20111201
  Receipt Date: 20111128
  Transmission Date: 20120403
  Serious: Yes (Other)
  Sender: FDA-Public Use
  Company Number: US-PFIZER INC-2011146505

PATIENT
  Sex: Female

DRUGS (8)
  1. CHANTIX [Suspect]
     Indication: SMOKING CESSATION THERAPY
     Dosage: STARTER PACK
     Route: 048
     Dates: start: 20090226, end: 20090320
  2. LEVOTHYROXINE [Concomitant]
     Indication: BASEDOW'S DISEASE
     Dosage: UNK
     Dates: start: 20050101
  3. HYDROCODONE [Concomitant]
     Indication: CROHN'S DISEASE
  4. CLONAZEPAM [Concomitant]
     Indication: INSOMNIA
     Dosage: UNK
     Dates: start: 20040101
  5. HYDROCODONE [Concomitant]
     Indication: ABDOMINAL PAIN UPPER
     Dosage: UNK
     Dates: start: 20030101
  6. HYDROCODONE [Concomitant]
     Indication: DIARRHOEA
  7. CLONAZEPAM [Concomitant]
     Indication: ANXIETY
  8. CHANTIX [Suspect]
     Dosage: CONTINUING PACK
     Route: 048
     Dates: start: 20090325, end: 20090401

REACTIONS (4)
  - DEPRESSION [None]
  - SUICIDAL IDEATION [None]
  - NIGHTMARE [None]
  - ANXIETY [None]
